FAERS Safety Report 4721054-9 (Version None)
Quarter: 2005Q3

REPORT INFORMATION
  Report Type: 
  Country: None (occurrence: None)
  Receive Date: 20050719
  Receipt Date: 20041111
  Transmission Date: 20060218
  Serious: Yes (Hospitalization, Other)
  Sender: FDA-Public Use
  Company Number: 2004089443

PATIENT
  Age: 82 Year
  Sex: Female
  Weight: 90.7194 kg

DRUGS (9)
  1. CELEBREX [Suspect]
     Indication: OSTEOARTHRITIS
     Dosage: 200 MG (200 MG,1 IN 1 D), ORAL
     Route: 048
     Dates: start: 20000801, end: 20041101
  2. CELEBREX [Suspect]
     Indication: OSTEOPOROSIS
     Dosage: 200 MG (200 MG,1 IN 1 D), ORAL
     Route: 048
     Dates: start: 20000801, end: 20041101
  3. IRBESARTAN [Concomitant]
  4. CENTRUM A TO ZINC (MINERALS NOS, VITAMINS NOS) [Concomitant]
  5. PYRIDOXINE HCL [Concomitant]
  6. TORSEMIDE [Concomitant]
  7. ASPIRIN [Concomitant]
  8. TOCOPHEROL (TOCOPHEROL) [Concomitant]
  9. LAXATIVES (LAXATIVES) [Concomitant]

REACTIONS (5)
  - DIVERTICULITIS [None]
  - DRUG INEFFECTIVE [None]
  - OSTEOARTHRITIS [None]
  - PRURITUS [None]
  - RASH [None]
